FAERS Safety Report 8275415-4 (Version None)
Quarter: 2012Q2

REPORT INFORMATION
  Report Type: 
  Country: None (occurrence: None)
  Receive Date: 20120411
  Receipt Date: 20120402
  Transmission Date: 20120825
  Serious: Yes (Hospitalization)
  Sender: FDA-Public Use
  Company Number: FR-ELI_LILLY_AND_COMPANY-FR201204001504

PATIENT
  Age: 74 Year
  Sex: Female

DRUGS (7)
  1. BYETTA [Suspect]
     Dosage: UNK, UNKNOWN
     Route: 058
     Dates: end: 20110922
  2. HYPERIUM [Concomitant]
  3. DIAMICRON [Concomitant]
  4. ACETAMINOPHEN [Concomitant]
  5. RABEPRAZOLE SODIUM [Concomitant]
  6. GINKOR                             /00838501/ [Concomitant]
  7. METFORMIN HCL [Concomitant]

REACTIONS (2)
  - IRON DEFICIENCY ANAEMIA [None]
  - GASTRITIS [None]
